FAERS Safety Report 10162531 (Version 11)
Quarter: 2016Q1

REPORT INFORMATION
  Report Type: Report from Study
  Country: CA (occurrence: CA)
  Receive Date: 20140509
  Receipt Date: 20160304
  Transmission Date: 20160525
  Serious: No
  Sender: FDA-Public Use
  Company Number: PHHY2014CA053852

PATIENT
  Age: 66 Year
  Sex: Female

DRUGS (6)
  1. MORPHINE [Interacting]
     Active Substance: MORPHINE
     Indication: PAIN PROPHYLAXIS
     Route: 065
  2. ADVIL [Interacting]
     Active Substance: IBUPROFEN
     Indication: PAIN PROPHYLAXIS
     Route: 065
  3. TASIGNA [Suspect]
     Active Substance: NILOTINIB
     Dosage: 300 MG, BID
     Route: 048
     Dates: start: 20151009
  4. TYLENOL [Interacting]
     Active Substance: ACETAMINOPHEN
     Indication: PAIN PROPHYLAXIS
     Route: 065
  5. SYNTHROID [Concomitant]
     Active Substance: LEVOTHYROXINE SODIUM
     Indication: HYPOTHYROIDISM
     Route: 065
  6. TASIGNA [Suspect]
     Active Substance: NILOTINIB
     Indication: CHRONIC MYELOID LEUKAEMIA
     Dosage: 300 MG, BID (TWICE DAILY)
     Route: 048
     Dates: start: 20140124, end: 20150930

REACTIONS (26)
  - Dysuria [Recovered/Resolved]
  - Dysgeusia [Unknown]
  - Nasopharyngitis [Unknown]
  - Urine output increased [Not Recovered/Not Resolved]
  - Skin irritation [Unknown]
  - Renal disorder [Unknown]
  - Bladder dysfunction [Unknown]
  - Drug interaction [Unknown]
  - Pollakiuria [Not Recovered/Not Resolved]
  - Overweight [Unknown]
  - Hypersomnia [Unknown]
  - Post procedural complication [Unknown]
  - Haemorrhage urinary tract [Recovered/Resolved]
  - Weight decreased [Unknown]
  - Abdominal distension [Unknown]
  - Therapeutic response decreased [Unknown]
  - Cough [Unknown]
  - Fatigue [Unknown]
  - Fall [Unknown]
  - Decreased appetite [Recovering/Resolving]
  - Emotional disorder [Unknown]
  - High density lipoprotein increased [Unknown]
  - White blood cell disorder [Unknown]
  - Wound infection [Recovering/Resolving]
  - Urinary incontinence [Unknown]
  - Diarrhoea [Unknown]

NARRATIVE: CASE EVENT DATE: 20151009
